FAERS Safety Report 4598287-8 (Version None)
Quarter: 2005Q1

REPORT INFORMATION
  Report Type: 
  Country: None (occurrence: None)
  Receive Date: 20050301
  Receipt Date: 20050301
  Transmission Date: 20050727
  Serious: Yes (Other)
  Sender: FDA-Public Use
  Company Number: None

PATIENT
  Age: 34 Year
  Sex: Female
  Weight: 64.4108 kg

DRUGS (1)
  1. ABREVA [Suspect]
     Indication: HERPES SIMPLEX
     Dosage: SMALL AMT ONE APPLICATION  TOPICAL
     Route: 061
     Dates: start: 20050224, end: 20050224

REACTIONS (3)
  - DYSGEUSIA [None]
  - UPPER RESPIRATORY TRACT CONGESTION [None]
  - URTICARIA [None]
